FAERS Safety Report 18588525 (Version 1)
Quarter: 2020Q4

REPORT INFORMATION
  Report Type: Spontaneous
  Country: DE (occurrence: DE)
  Receive Date: 20201207
  Receipt Date: 20201207
  Transmission Date: 20210114
  Serious: Yes (Other)
  Sender: FDA-Public Use
  Company Number: DE-GILEAD-2020-0507745

PATIENT
  Age: 85 Year
  Sex: Male

DRUGS (11)
  1. PANTOPRAZOLE SODIUM SESQUIHYDRATE [Concomitant]
     Active Substance: PANTOPRAZOLE SODIUM
     Dosage: AS NEEDED
  2. RANEXA [Suspect]
     Active Substance: RANOLAZINE
     Indication: ANGINA PECTORIS
     Dosage: 375 MG, BID
     Route: 048
     Dates: start: 20200924, end: 20201111
  3. CANDESARTAN CILEXETIL. [Concomitant]
     Active Substance: CANDESARTAN CILEXETIL
     Dosage: 0-0-1/2-0
  4. SPIRONOLACTONE. [Concomitant]
     Active Substance: SPIRONOLACTONE
     Dosage: 1/4-0-0-0
  5. ATORVASTATIN CALCIUM. [Concomitant]
     Active Substance: ATORVASTATIN CALCIUM
     Dosage: 0-0-1/2-0
     Route: 048
  6. ACETYLSALICYLIC ACID [Concomitant]
     Active Substance: ASPIRIN
     Dosage: 1-0-0-0
     Route: 048
  7. CALCIUM CARBONATE. [Concomitant]
     Active Substance: CALCIUM CARBONATE
  8. RANITIDINE HYDROCHLORIDE. [Concomitant]
     Active Substance: RANITIDINE HYDROCHLORIDE
     Dosage: 0-0-1-0
  9. MAGNESIUM [Concomitant]
     Active Substance: MAGNESIUM
     Dosage: 0-0-1-0
  10. TRYPTOPHAN, L- [Concomitant]
     Active Substance: TRYPTOPHAN
     Dosage: 0-0-1-0
  11. COLECALCIFEROL [Concomitant]
     Active Substance: CHOLECALCIFEROL
     Route: 048

REACTIONS (1)
  - Glomerular filtration rate decreased [Recovered/Resolved]

NARRATIVE: CASE EVENT DATE: 20201111
